FAERS Safety Report 8597743-5 (Version None)
Quarter: 2012Q3

REPORT INFORMATION
  Report Type: 
  Country: None (occurrence: None)
  Receive Date: 20120816
  Receipt Date: 20120809
  Transmission Date: 20120928
  Serious: Yes (Other)
  Sender: FDA-Public Use
  Company Number: PHHY2012BR069734

PATIENT
  Sex: Female
  Weight: 110 kg

DRUGS (3)
  1. OMEPRAZOLE [Concomitant]
     Indication: HIATUS HERNIA
     Dosage: 1 DF (20 MG), A DAY
     Route: 048
  2. DIOVAN HCT [Suspect]
     Indication: HYPERTENSION
     Dosage: 1 DF (160/12.5 MG), A DAY
     Route: 048
  3. DIOVAN HCT [Suspect]
     Dosage: 1 DF (320/12.5 MG), A DAY
     Route: 048

REACTIONS (6)
  - LIGAMENT RUPTURE [None]
  - OSTEOARTHRITIS [None]
  - HYPERTENSION [None]
  - BLOOD GLUCOSE INCREASED [None]
  - ARTHRALGIA [None]
  - DIABETES MELLITUS [None]
